FAERS Safety Report 24800876 (Version 3)
Quarter: 2025Q1

REPORT INFORMATION
  Report Type: Spontaneous
  Country: FR (occurrence: FR)
  Receive Date: 20250102
  Receipt Date: 20250128
  Transmission Date: 20250408
  Serious: Yes (Other)
  Sender: MERCK
  Company Number: None

PATIENT
  Age: 58 Year
  Sex: Female

DRUGS (4)
  1. IVERMECTIN [Suspect]
     Active Substance: IVERMECTIN
     Indication: Acarodermatitis
     Route: 048
     Dates: start: 20241014, end: 20241014
  2. IVERMECTIN [Suspect]
     Active Substance: IVERMECTIN
     Route: 048
     Dates: start: 20241106, end: 20241106
  3. PRISTINAMYCIN [Suspect]
     Active Substance: PRISTINAMYCIN
     Indication: Impetigo
     Dosage: 2 GRAM, QD
     Route: 048
     Dates: start: 20241026, end: 20241031
  4. CETIRIZINE HYDROCHLORIDE [Suspect]
     Active Substance: CETIRIZINE HYDROCHLORIDE
     Indication: Rash pruritic
     Dosage: 1 DOSAGE FORM, QD
     Route: 048
     Dates: start: 20241106

REACTIONS (1)
  - Lichenoid keratosis [Not Recovered/Not Resolved]

NARRATIVE: CASE EVENT DATE: 20241119
